FAERS Safety Report 25214683 (Version 1)
Quarter: 2025Q2

REPORT INFORMATION
  Report Type: Spontaneous
  Country: US (occurrence: None)
  Receive Date: 20250417
  Receipt Date: 20250417
  Transmission Date: 20250717
  Serious: Yes (Hospitalization)
  Sender: FDA-CTU
  Company Number: None

PATIENT
  Sex: Female

DRUGS (1)
  1. ENBREL [Suspect]
     Active Substance: ETANERCEPT
     Indication: Rheumatoid arthritis
     Route: 058
     Dates: start: 20240626

REACTIONS (7)
  - Mobility decreased [None]
  - Job dissatisfaction [None]
  - COVID-19 [None]
  - Influenza [None]
  - Gastroenteritis viral [None]
  - Thrombosis [None]
  - Pain [None]
